FAERS Safety Report 4506968-7 (Version None)
Quarter: 2004Q4

REPORT INFORMATION
  Report Type: 
  Country: None (occurrence: None)
  Receive Date: 20041117
  Receipt Date: 20041110
  Transmission Date: 20050328
  Serious: Yes (Congenital Anomaly, Other)
  Sender: FDA-Public Use
  Company Number: 200411786GDS

PATIENT
  Age: 68 Year
  Sex: Male
  Weight: 80 kg

DRUGS (6)
  1. LEVITRA [Suspect]
     Indication: ERECTILE DYSFUNCTION
     Dosage: SEE IMAGE
     Route: 048
     Dates: start: 20031127
  2. LEVITRA [Suspect]
     Indication: ERECTILE DYSFUNCTION
     Dosage: SEE IMAGE
     Route: 048
     Dates: start: 20031129
  3. LEVITRA [Suspect]
     Indication: ERECTILE DYSFUNCTION
     Dosage: SEE IMAGE
     Route: 048
     Dates: start: 20031203
  4. LEVITRA [Suspect]
     Indication: ERECTILE DYSFUNCTION
     Dosage: SEE IMAGE
     Route: 048
     Dates: start: 20031206
  5. LEVITRA [Suspect]
     Indication: ERECTILE DYSFUNCTION
     Dosage: SEE IMAGE
     Route: 048
     Dates: start: 20031209
  6. LEVITRA [Suspect]
     Indication: ERECTILE DYSFUNCTION
     Dosage: SEE IMAGE
     Route: 048
     Dates: start: 20031212

REACTIONS (2)
  - ASTHMA [None]
  - RHINITIS [None]
